FAERS Safety Report 9867041 (Version 2)
Quarter: 2014Q1

REPORT INFORMATION
  Report Type: Spontaneous
  Country: US (occurrence: US)
  Receive Date: 20140204
  Receipt Date: 20140327
  Transmission Date: 20141002
  Serious: Yes (Death, Hospitalization, Other)
  Sender: FDA-Public Use
  Company Number: US-MERCK-1401USA014735

PATIENT
  Sex: Female
  Weight: 53.52 kg

DRUGS (3)
  1. JANUMET [Suspect]
     Indication: TYPE 2 DIABETES MELLITUS
     Dosage: 50/1000 MG, BID
     Route: 048
     Dates: start: 20081118
  2. JANUMET [Suspect]
     Dosage: 50/1000 MG, BID
     Route: 048
     Dates: start: 20090323, end: 20100208
  3. JANUVIA [Suspect]
     Indication: TYPE 2 DIABETES MELLITUS
     Dosage: 100 MG, QD
     Route: 048
     Dates: start: 20090202, end: 20090323

REACTIONS (26)
  - Pancreatic carcinoma [Fatal]
  - Adverse event [Unknown]
  - Chronic obstructive pulmonary disease [Unknown]
  - Emphysema [Unknown]
  - Asthma [Unknown]
  - Hypertension [Unknown]
  - Transient ischaemic attack [Unknown]
  - Arthritis [Unknown]
  - Hysterectomy [Unknown]
  - Insulin-requiring type 2 diabetes mellitus [Unknown]
  - Diverticulitis [Unknown]
  - Pneumonia influenzal [Unknown]
  - Hyperlipidaemia [Unknown]
  - Influenza [Unknown]
  - Depression [Unknown]
  - Decreased appetite [Unknown]
  - Insomnia [Unknown]
  - Weight decreased [Unknown]
  - Respiratory disorder [Unknown]
  - Hyperhidrosis [Unknown]
  - Syncope [Unknown]
  - Dehydration [Unknown]
  - Asthenia [Unknown]
  - Nausea [Unknown]
  - Vomiting [Unknown]
  - Rash macular [Unknown]
